FAERS Safety Report 9564213 (Version 2)
Quarter: 2013Q4

REPORT INFORMATION
  Report Type: Spontaneous
  Country: US (occurrence: US)
  Receive Date: 20130930
  Receipt Date: 20131010
  Transmission Date: 20140711
  Serious: No
  Sender: FDA-Public Use
  Company Number: US-009507513-1309USA012527

PATIENT
  Sex: Female

DRUGS (2)
  1. COZAAR [Suspect]
     Dosage: 50 MG
     Route: 048
     Dates: start: 20130815
  2. AMLODIPINE [Suspect]
     Dosage: 5 MG
     Dates: start: 20130815

REACTIONS (2)
  - Hypertension [Unknown]
  - Drug ineffective [Unknown]
